FAERS Safety Report 10468448 (Version 1)
Quarter: 2014Q3

REPORT INFORMATION
  Report Type: Spontaneous
  Country: US (occurrence: US)
  Receive Date: 20140922
  Receipt Date: 20140922
  Transmission Date: 20150326
  Serious: No
  Sender: FDA-Public Use
  Company Number: US-ALLERGAN-1313103US

PATIENT
  Age: 63 Year
  Sex: Male

DRUGS (1)
  1. LASTACAFT [Suspect]
     Active Substance: ALCAFTADINE
     Indication: PRODUCT USED FOR UNKNOWN INDICATION
     Dosage: 2 GTT, BID
     Route: 047
     Dates: start: 20130826

REACTIONS (5)
  - Scleral hyperaemia [Unknown]
  - Hypersensitivity [Unknown]
  - Eye pain [Unknown]
  - Eye irritation [Unknown]
  - Drug ineffective [Unknown]
